FAERS Safety Report 9347922 (Version 5)
Quarter: 2014Q3

REPORT INFORMATION
  Report Type: Spontaneous
  Country: US (occurrence: US)
  Receive Date: 20130614
  Receipt Date: 20140815
  Transmission Date: 20150326
  Serious: Yes (Other)
  Sender: FDA-Public Use
  Company Number: US-BAYER-2013-071380

PATIENT
  Age: 28 Year
  Sex: Female
  Weight: 44 kg

DRUGS (1)
  1. MIRENA [Suspect]
     Active Substance: LEVONORGESTREL
     Indication: CONTRACEPTION
     Dosage: 20 MCG/24HR, CONT
     Route: 015
     Dates: start: 20111106, end: 20130614

REACTIONS (13)
  - Device difficult to use [None]
  - Uterine scar [None]
  - Procedural pain [None]
  - Aphagia [None]
  - Insomnia [None]
  - Uterine perforation [None]
  - Procedural haemorrhage [None]
  - Post procedural discomfort [None]
  - Anxiety [None]
  - Device dislocation [None]
  - Malaise [None]
  - Injury [None]
  - Device issue [None]

NARRATIVE: CASE EVENT DATE: 201111
